FAERS Safety Report 6026988-3 (Version None)
Quarter: 2009Q1

REPORT INFORMATION
  Report Type: 
  Country: None (occurrence: None)
  Receive Date: 20090105
  Receipt Date: 20081225
  Transmission Date: 20090719
  Serious: Yes (Other)
  Sender: FDA-Public Use
  Company Number: JP-PFIZER INC-2008159104

PATIENT

DRUGS (2)
  1. HALCION [Suspect]
     Route: 048
  2. LENDORMIN [Concomitant]
     Dosage: 0.25 MG, 2X/DAY
     Route: 048

REACTIONS (1)
  - ROAD TRAFFIC ACCIDENT [None]
